FAERS Safety Report 10915063 (Version 2)
Quarter: 2015Q2

REPORT INFORMATION
  Report Type: Spontaneous
  Country: AT (occurrence: AT)
  Receive Date: 20150315
  Receipt Date: 20150407
  Transmission Date: 20150821
  Serious: Yes (Hospitalization)
  Sender: FDA-Public Use
  Company Number: AT-TEVA-546824ISR

PATIENT
  Age: 86 Year
  Sex: Female

DRUGS (11)
  1. LOSARTAN [Suspect]
     Active Substance: LOSARTAN
  2. TRAZODON [Suspect]
     Active Substance: TRAZODONE HYDROCHLORIDE
  3. UROSIN [Suspect]
     Active Substance: ALLOPURINOL
  4. INDAPAMIDE. [Suspect]
     Active Substance: INDAPAMIDE
  5. THROMBO ASS [Suspect]
     Active Substance: ASPIRIN
  6. ITERIUM [Suspect]
     Active Substance: RILMENIDINE
  7. SERTRALINE [Suspect]
     Active Substance: SERTRALINE HYDROCHLORIDE
  8. AMLODIPINE [Suspect]
     Active Substance: AMLODIPINE BESYLATE
  9. CONCOR [Suspect]
     Active Substance: BISOPROLOL FUMARATE
  10. FUROSEMIDE. [Suspect]
     Active Substance: FUROSEMIDE
  11. PANTOLOC [Suspect]
     Active Substance: PANTOPRAZOLE SODIUM

REACTIONS (11)
  - Dementia [Recovering/Resolving]
  - Hypokalaemia [Unknown]
  - Syncope [Recovering/Resolving]
  - Depression [Recovering/Resolving]
  - Depressed mood [Recovering/Resolving]
  - Apathy [Recovering/Resolving]
  - Hyponatraemia [Unknown]
  - Hypochloraemia [Unknown]
  - Hallucination [Recovering/Resolving]
  - Hypertonia [Recovered/Resolved]
  - Dehydration [Recovering/Resolving]
